FAERS Safety Report 11768205 (Version 1)
Quarter: 2015Q4

REPORT INFORMATION
  Report Type: Spontaneous
  Country: US (occurrence: None)
  Receive Date: 20151120
  Receipt Date: 20151120
  Transmission Date: 20160304
  Serious: Yes (Other)
  Sender: FDA-Public Use
  Company Number: None

PATIENT
  Age: 8 Year
  Sex: Male
  Weight: 28.58 kg

DRUGS (2)
  1. DAYTRANA [Suspect]
     Active Substance: METHYLPHENIDATE
     Indication: ATTENTION DEFICIT/HYPERACTIVITY DISORDER
     Dosage: 30 PATCHES ONCE DAILY APPLIED TO A SURFACE, USUALY THE SKIN
     Route: 061
     Dates: start: 20151119
  2. SAPHRIS [Concomitant]
     Active Substance: ASENAPINE MALEATE

REACTIONS (5)
  - Drug effect decreased [None]
  - Agitation [None]
  - Device leakage [None]
  - Product quality issue [None]
  - Product adhesion issue [None]

NARRATIVE: CASE EVENT DATE: 20151119
